FAERS Safety Report 17687304 (Version 1)
Quarter: 2020Q2

REPORT INFORMATION
  Report Type: Spontaneous
  Country: US (occurrence: US)
  Receive Date: 20200421
  Receipt Date: 20200421
  Transmission Date: 20200714
  Serious: No
  Sender: FDA-Public Use
  Company Number: US-APOTEX-2020AP009325

PATIENT
  Age: 63 Year
  Sex: Female

DRUGS (1)
  1. BIMATOPROST OPHTHALMIC SOLUTION [Suspect]
     Active Substance: BIMATOPROST
     Indication: EYELASH THICKENING
     Dosage: UNK,USING INTERMITTENTLY FOR APPROXIMATELY THREE YEARS
     Route: 061

REACTIONS (3)
  - Wrong technique in product usage process [Unknown]
  - Accidental exposure to product [Unknown]
  - Iris hyperpigmentation [Not Recovered/Not Resolved]
